FAERS Safety Report 7398899-2 (Version None)
Quarter: 2011Q1

REPORT INFORMATION
  Report Type: 
  Country: None (occurrence: None)
  Receive Date: 20110328
  Receipt Date: 20110226
  Transmission Date: 20110831
  Serious: No
  Sender: FDA-Public Use
  Company Number: 2011-00081

PATIENT
  Age: 49 Year
  Sex: Female
  Weight: 42.6381 kg

DRUGS (6)
  1. MUCINEX [Concomitant]
  2. SUDAFED 12 HOUR [Concomitant]
  3. ASCORBIC ACID [Concomitant]
  4. OXYMETAZOLINE HCL [Concomitant]
  5. LAMICTAL [Concomitant]
  6. ZICAM COLD REMEDY ORAL MIST [Suspect]
     Dosage: TID-QID X 2-3 DAYS
     Dates: start: 20110222, end: 20110225

REACTIONS (2)
  - HYPOSMIA [None]
  - HYPOGEUSIA [None]
